FAERS Safety Report 10259604 (Version 1)
Quarter: 2014Q2

REPORT INFORMATION
  Report Type: Report from Study
  Country: US (occurrence: US)
  Receive Date: 20140625
  Receipt Date: 20140625
  Transmission Date: 20141212
  Serious: Yes (Other)
  Sender: FDA-Public Use
  Company Number: US-ASTRAZENECA-2014SE45936

PATIENT
  Age: 310 Month
  Sex: Female
  Weight: 72.6 kg

DRUGS (12)
  1. SEROQUEL XR [Suspect]
     Indication: BIPOLAR DISORDER
     Route: 048
     Dates: start: 2009
  2. AMITRIPTYLINE [Suspect]
     Indication: BIPOLAR DISORDER
     Route: 065
     Dates: start: 2009
  3. WELLBUTRIN SR [Concomitant]
     Indication: BIPOLAR DISORDER
     Route: 048
     Dates: start: 2009
  4. FENTANYL [Concomitant]
     Indication: NEURALGIA
     Dosage: 50 MCG HOUR, PATCH EVERY 4- 8 HR
     Route: 061
     Dates: start: 2009
  5. BACLOFEN [Concomitant]
     Indication: MUSCLE SPASMS
     Route: 048
     Dates: start: 2011
  6. LORAZEPAM [Concomitant]
     Indication: MUSCLE SPASMS
     Route: 048
     Dates: start: 2013
  7. OXYBUTYNIN [Concomitant]
     Indication: BLADDER DISORDER
     Route: 048
     Dates: start: 2011
  8. LEVETIRACETAM [Concomitant]
     Indication: TEMPORAL LOBE EPILEPSY
     Route: 048
     Dates: start: 201405
  9. NUVIGIL [Concomitant]
     Indication: NARCOLEPSY
     Route: 048
     Dates: start: 2011, end: 201405
  10. ADDERALL [Concomitant]
     Indication: NARCOLEPSY
     Route: 048
     Dates: start: 201405
  11. LYRICA [Concomitant]
     Indication: NEUROPATHY PERIPHERAL
     Route: 048
     Dates: start: 2009
  12. ORTHOEVRA [Concomitant]
     Indication: CONTRACEPTION
     Dosage: FOR 3 WKS THEN 1 WEEK OFF
     Route: 048
     Dates: start: 2009

REACTIONS (12)
  - Fall [Unknown]
  - Loss of consciousness [Unknown]
  - Temporal lobe epilepsy [Unknown]
  - Muscle spasms [Unknown]
  - Insomnia [Not Recovered/Not Resolved]
  - Neuromyelitis optica [Unknown]
  - Optic atrophy [Unknown]
  - Hypertonic bladder [Unknown]
  - Narcolepsy [Unknown]
  - Restlessness [Not Recovered/Not Resolved]
  - Fatigue [Not Recovered/Not Resolved]
  - Intentional product misuse [Not Recovered/Not Resolved]
